FAERS Safety Report 5069705-6 (Version None)
Quarter: 2006Q3

REPORT INFORMATION
  Report Type: 
  Country: None (occurrence: None)
  Receive Date: 20060714
  Receipt Date: 20060405
  Transmission Date: 20061208
  Serious: No
  Sender: FDA-Public Use
  Company Number: 2006SP001563

PATIENT
  Age: 62 Year
  Sex: Female
  Weight: 59.7 kg

DRUGS (6)
  1. LUNESTA [Suspect]
     Indication: INSOMNIA
     Dosage: SEE IMAGE
     Route: 048
     Dates: start: 20050901, end: 20051101
  2. LUNESTA [Suspect]
     Indication: INSOMNIA
     Dosage: SEE IMAGE
     Route: 048
     Dates: start: 20051101, end: 20060302
  3. CELEBREX [Concomitant]
  4. ZYRTEC [Concomitant]
  5. ATORVASTATIN CALCIUM [Concomitant]
  6. NSAID'S [Concomitant]

REACTIONS (1)
  - DYSGEUSIA [None]
